FAERS Safety Report 8120578-4 (Version None)
Quarter: 2012Q1

REPORT INFORMATION
  Report Type: 
  Country: None (occurrence: None)
  Receive Date: 20120207
  Receipt Date: 20120127
  Transmission Date: 20120608
  Serious: Yes (Hospitalization)
  Sender: FDA-Public Use
  Company Number: FR-PFIZER INC-2009272687

PATIENT
  Age: 85 Year
  Sex: Male

DRUGS (13)
  1. ALDACTONE [Suspect]
     Dosage: 25 MG, 1X/DAY
     Route: 048
     Dates: end: 20090309
  2. MODOPAR [Suspect]
     Indication: PARKINSONISM
     Dosage: 1 DF, 3X/DAY
     Route: 048
     Dates: start: 20090201, end: 20090309
  3. ALLOPURINOL [Concomitant]
     Dosage: UNK
  4. GABAPENTIN [Suspect]
     Indication: PARKINSONISM
     Dosage: 300 MG, 3X/DAY
     Route: 048
     Dates: start: 20090201, end: 20090309
  5. ASPIRIN [Concomitant]
     Dosage: UNK
  6. SIMVASTATIN [Concomitant]
     Dosage: UNK
  7. PLAVIX [Concomitant]
     Dosage: UNK
  8. RAMIPRIL [Suspect]
     Dosage: 5 MG, 2X/DAY
     Route: 048
     Dates: end: 20090309
  9. ISOSORBIDE MONONITRATE [Suspect]
     Dosage: 40 MG, 2X/DAY
     Route: 048
     Dates: end: 20090309
  10. POTASSIUM CHLORIDE [Concomitant]
     Dosage: UNK
  11. SERC [Concomitant]
     Dosage: UNK
  12. CELECTOL [Suspect]
     Dosage: 100 MG, 1X/DAY
     Route: 048
     Dates: end: 20090309
  13. FUROSEMIDE [Concomitant]
     Dosage: UNK

REACTIONS (6)
  - NIGHTMARE [None]
  - BRADYCARDIA [None]
  - SOMNOLENCE [None]
  - AGGRESSION [None]
  - CONFUSIONAL STATE [None]
  - HYPOTENSION [None]
